FAERS Safety Report 6930400-7 (Version None)
Quarter: 2010Q3

REPORT INFORMATION
  Report Type: 
  Country: None (occurrence: None)
  Receive Date: 20100818
  Receipt Date: 20100806
  Transmission Date: 20110219
  Serious: Yes (Hospitalization, Disabling, Other)
  Sender: FDA-Public Use
  Company Number: JP-PFIZER INC-2010091349

PATIENT
  Age: 92 Year
  Sex: Female
  Weight: 50 kg

DRUGS (7)
  1. LYRICA [Suspect]
     Indication: POST HERPETIC NEURALGIA
     Dosage: 75 MG, 1X/DAY
     Route: 048
     Dates: start: 20100706, end: 20100707
  2. LYRICA [Suspect]
     Indication: PAIN
  3. HERBESSER ^DELTA^ [Concomitant]
     Dosage: 30 MG, 2X/DAY
     Route: 048
     Dates: start: 19991012
  4. BLOPRESS [Concomitant]
     Dosage: 8 MG, 1X/DAY
     Route: 048
     Dates: start: 20090324
  5. ASPIRIN [Concomitant]
     Dosage: 100 MG, 1X/DAY
     Route: 048
     Dates: start: 20070423
  6. RIZE [Concomitant]
     Dosage: 10 MG, 1X/DAY
     Route: 048
     Dates: start: 19991012
  7. PURSENNID [Concomitant]
     Dosage: 12 MG, 3X/DAY
     Route: 047
     Dates: start: 20090629

REACTIONS (14)
  - BRADYCARDIA [None]
  - CEREBRAL INFARCTION [None]
  - DECREASED APPETITE [None]
  - DEHYDRATION [None]
  - DELIRIUM [None]
  - DELUSION [None]
  - DEMENTIA [None]
  - GLOMERULONEPHRITIS CHRONIC [None]
  - HERPES ZOSTER [None]
  - LETHARGY [None]
  - MOVEMENT DISORDER [None]
  - PAIN [None]
  - SLEEP DISORDER [None]
  - SOMNOLENCE [None]
